FAERS Safety Report 8214306-1 (Version None)
Quarter: 2012Q1

REPORT INFORMATION
  Report Type: 
  Country: None (occurrence: None)
  Receive Date: 20120315
  Receipt Date: 20120315
  Transmission Date: 20120608
  Serious: Yes (Hospitalization)
  Sender: FDA-Public Use
  Company Number: None

PATIENT
  Sex: Female
  Weight: 73.3 kg

DRUGS (2)
  1. ZOMETA [Suspect]
     Dosage: 3 MG
  2. REVLIMID [Concomitant]

REACTIONS (2)
  - NEPHRITIS [None]
  - DIALYSIS [None]
